FAERS Safety Report 8317040-2 (Version None)
Quarter: 2012Q2

REPORT INFORMATION
  Report Type: 
  Country: None (occurrence: None)
  Receive Date: 20120427
  Receipt Date: 20120423
  Transmission Date: 20120825
  Serious: Yes (Other)
  Sender: FDA-Public Use
  Company Number: CO-PFIZER INC-2012095236

PATIENT
  Age: 9 Year
  Sex: Female

DRUGS (1)
  1. GENOTROPIN [Suspect]
     Indication: DWARFISM
     Dosage: UNK, DAILY
     Route: 058
     Dates: start: 20090201

REACTIONS (9)
  - INJECTION SITE PAIN [None]
  - HORDEOLUM [None]
  - COUGH [None]
  - JOINT ABSCESS [None]
  - INJECTION SITE SWELLING [None]
  - INJECTION SITE ERYTHEMA [None]
  - LICE INFESTATION [None]
  - OBESITY [None]
  - INJECTION SITE VESICLES [None]
